FAERS Safety Report 9370729 (Version 1)
Quarter: 2013Q2

REPORT INFORMATION
  Report Type: Spontaneous
  Country: FR (occurrence: FR)
  Receive Date: 20130626
  Receipt Date: 20130626
  Transmission Date: 20140414
  Serious: Yes (Death, Hospitalization)
  Sender: FDA-Public Use
  Company Number: FR-TEVA-414083ISR

PATIENT
  Age: 91 Year
  Sex: Male

DRUGS (5)
  1. FUROSEMIDE TEVA 40 MG [Suspect]
     Dosage: 40 MILLIGRAM DAILY;
     Route: 048
     Dates: start: 20130606, end: 20130606
  2. FUROSEMIDE TEVA 40 MG [Suspect]
     Dosage: 40 MILLIGRAM DAILY;
     Dates: start: 20130531, end: 20130605
  3. DISCOTRINE [Concomitant]
  4. KALEORID [Concomitant]
  5. SEROPLEX 10 [Concomitant]

REACTIONS (3)
  - Somnolence [Not Recovered/Not Resolved]
  - Urinary retention [Unknown]
  - Uraemic encephalopathy [Fatal]
